FAERS Safety Report 25926748 (Version 1)
Quarter: 2025Q4

REPORT INFORMATION
  Report Type: Spontaneous
  Country: US (occurrence: None)
  Receive Date: 20251015
  Receipt Date: 20251015
  Transmission Date: 20260117
  Serious: Yes (Other)
  Sender: FDA-CTU
  Company Number: None

PATIENT
  Age: 35 Year
  Sex: Female
  Weight: 63 kg

DRUGS (10)
  1. CYCLOBENZAPRINE [Suspect]
     Active Substance: CYCLOBENZAPRINE
     Indication: Anxiety
  2. CYCLOBENZAPRINE [Suspect]
     Active Substance: CYCLOBENZAPRINE
     Indication: Bruxism
  3. MELOXICAM [Suspect]
     Active Substance: MELOXICAM
  4. WELLBUTRIN [Concomitant]
     Active Substance: BUPROPION HYDROCHLORIDE
  5. ZOLOFT [Concomitant]
     Active Substance: SERTRALINE HYDROCHLORIDE
  6. CYCLOBENZAPRINE [Concomitant]
     Active Substance: CYCLOBENZAPRINE
  7. BIOTIN [Concomitant]
     Active Substance: BIOTIN
  8. VITAMINS [Concomitant]
     Active Substance: VITAMINS
  9. FIBER THERAPY (CALCIUM POLYCARBOPHIL) [Concomitant]
     Active Substance: CALCIUM POLYCARBOPHIL
  10. PROBIOTICS NOS [Concomitant]
     Active Substance: PROBIOTICS NOS

REACTIONS (13)
  - Dizziness [None]
  - Headache [None]
  - Product dispensing error [None]
  - Wrong product administered [None]
  - Weight increased [None]
  - Night sweats [None]
  - Anxiety [None]
  - Heart rate increased [None]
  - Chest pain [None]
  - Fatigue [None]
  - Abdominal pain upper [None]
  - Feeling abnormal [None]
  - Blood iron decreased [None]

NARRATIVE: CASE EVENT DATE: 20250801
